FAERS Safety Report 6343920-3 (Version None)
Quarter: 2009Q3

REPORT INFORMATION
  Report Type: 
  Country: None (occurrence: None)
  Receive Date: 20090908
  Receipt Date: 20090828
  Transmission Date: 20100115
  Serious: Yes (Other)
  Sender: FDA-Public Use
  Company Number: US-PFIZER INC-2009243465

PATIENT
  Sex: Female

DRUGS (3)
  1. AZULFIDINE [Suspect]
     Indication: COLITIS ULCERATIVE
     Dosage: UNK
  2. SULFASALAZINE [Suspect]
     Indication: COLITIS ULCERATIVE
  3. FLAGYL [Suspect]
     Route: 042

REACTIONS (4)
  - DRUG HYPERSENSITIVITY [None]
  - MALAISE [None]
  - NEUROPATHY PERIPHERAL [None]
  - SURGERY [None]
